FAERS Safety Report 6788854-5 (Version None)
Quarter: 2010Q2

REPORT INFORMATION
  Report Type: 
  Country: None (occurrence: None)
  Receive Date: 20100623
  Receipt Date: 20080722
  Transmission Date: 20101027
  Serious: No
  Sender: FDA-Public Use
  Company Number: US-PFIZER INC-2008029066

PATIENT
  Sex: Male
  Weight: 88.6 kg

DRUGS (4)
  1. SUTENT [Suspect]
     Indication: RENAL CELL CARCINOMA
     Dates: start: 20070613
  2. PROSCAR [Concomitant]
  3. VITAMINS [Concomitant]
  4. CALCIUM CARBONATE [Concomitant]

REACTIONS (2)
  - ALOPECIA [None]
  - HAIR COLOUR CHANGES [None]
